FAERS Safety Report 10200719 (Version 2)
Quarter: 2014Q2

REPORT INFORMATION
  Report Type: Spontaneous
  Country: DE (occurrence: DE)
  Receive Date: 20140528
  Receipt Date: 20140528
  Transmission Date: 20141212
  Serious: Yes (Hospitalization)
  Sender: FDA-Public Use
  Company Number: DE-ROCHE-1392172

PATIENT
  Age: 65 Year
  Sex: Female
  Weight: 64 kg

DRUGS (3)
  1. MABTHERA [Suspect]
     Indication: NON-HODGKIN^S LYMPHOMA
     Route: 042
     Dates: start: 20130903
  2. GRANISETRON [Concomitant]
     Route: 042
     Dates: start: 20120903, end: 20140225
  3. PREDNISOLON [Concomitant]
     Route: 042
     Dates: start: 20120903, end: 20140225

REACTIONS (2)
  - Headache [Unknown]
  - Swelling [Recovered/Resolved]
